FAERS Safety Report 12640099 (Version 4)
Quarter: 2017Q1

REPORT INFORMATION
  Report Type: Spontaneous
  Country: US (occurrence: US)
  Receive Date: 20160810
  Receipt Date: 20170125
  Transmission Date: 20170428
  Serious: Yes (Congenital Anomaly, Other)
  Sender: FDA-Public Use
  Company Number: PHHY2015US129324

PATIENT
  Sex: Female

DRUGS (2)
  1. ZOFRAN [Suspect]
     Active Substance: ONDANSETRON HYDROCHLORIDE
     Indication: FOETAL EXPOSURE DURING PREGNANCY
     Dosage: MOTHER DOSE: 4 MG, UNK
     Route: 064
  2. ZOFRAN [Suspect]
     Active Substance: ONDANSETRON HYDROCHLORIDE
     Indication: FOETAL EXPOSURE DURING PREGNANCY
     Route: 064

REACTIONS (19)
  - Congenital anomaly [Unknown]
  - Tricuspid valve incompetence [Unknown]
  - Infantile apnoea [Unknown]
  - Emotional distress [Unknown]
  - Foetal exposure during pregnancy [Unknown]
  - Bronchitis viral [Unknown]
  - Gastrooesophageal reflux disease [Unknown]
  - Anxiety [Unknown]
  - Pain [Unknown]
  - Ventricular septal defect [Unknown]
  - Cardiac failure congestive [Unknown]
  - Urinary tract infection neonatal [Unknown]
  - Bundle branch block right [Unknown]
  - Injury [Unknown]
  - Tachypnoea [Unknown]
  - Dyspnoea [Unknown]
  - Heart disease congenital [Unknown]
  - Atrial septal defect [Unknown]
  - Gastric dilatation [Unknown]
